FAERS Safety Report 16794905 (Version 10)
Quarter: 2021Q2

REPORT INFORMATION
  Report Type: Spontaneous
  Country: US (occurrence: US)
  Receive Date: 20190911
  Receipt Date: 20210617
  Transmission Date: 20210716
  Serious: Yes (Other)
  Sender: FDA-Public Use
  Company Number: US-PFIZER INC-2019387533

PATIENT
  Age: 53 Year
  Sex: Female
  Weight: 67.13 kg

DRUGS (3)
  1. PREMPRO [Suspect]
     Active Substance: ESTROGENS, CONJUGATED\MEDROXYPROGESTERONE ACETATE
     Indication: GENITAL ATROPHY
  2. PREMPRO [Suspect]
     Active Substance: ESTROGENS, CONJUGATED\MEDROXYPROGESTERONE ACETATE
     Indication: OSTEOPOROSIS PROPHYLAXIS
  3. PREMPRO [Suspect]
     Active Substance: ESTROGENS, CONJUGATED\MEDROXYPROGESTERONE ACETATE
     Indication: HORMONE REPLACEMENT THERAPY
     Dosage: 1 DF, 1X/DAY (STRENGTH: 0.3/1/5 MG)
     Route: 048

REACTIONS (6)
  - Thrombosis [Unknown]
  - Multiple sclerosis [Unknown]
  - Depression [Unknown]
  - Illness [Unknown]
  - Migraine [Unknown]
  - Product dose omission issue [Unknown]
